FAERS Safety Report 7147539 (Version 2)
Quarter: 2019Q1

REPORT INFORMATION
  Report Type: Spontaneous
  Country: GB (occurrence: GB)
  Receive Date: 20091013
  Receipt Date: 20190227
  Transmission Date: 20190418
  Serious: Yes (Other)
  Sender: FDA-Public Use
  Company Number: GB-PFIZER INC-2009275998

PATIENT
  Age: 38 Year
  Sex: Female
  Weight: 114.3 kg

DRUGS (3)
  1. CITALOPRAM [Concomitant]
     Active Substance: CITALOPRAM HYDROBROMIDE
     Indication: DEPRESSION
     Dosage: 20 MG, UNK
     Dates: start: 200808, end: 20090812
  2. CHAMPIX [Suspect]
     Active Substance: VARENICLINE TARTRATE
     Indication: SMOKING CESSATION THERAPY
     Dosage: 1 MG, 2X/DAY
     Route: 048
     Dates: start: 20090812, end: 20090824
  3. CITALOPRAM [Concomitant]
     Active Substance: CITALOPRAM HYDROBROMIDE
     Dosage: 40 MG, UNK
     Dates: start: 20090812

REACTIONS (2)
  - Amnesia [Recovered/Resolved]
  - Somnambulism [Recovered/Resolved]

NARRATIVE: CASE EVENT DATE: 20090818
